FAERS Safety Report 9055642 (Version 1)
Quarter: 2013Q1

REPORT INFORMATION
  Report Type: Report from Study
  Country: US (occurrence: US)
  Receive Date: 20130206
  Receipt Date: 20130206
  Transmission Date: 20140127
  Serious: Yes (Hospitalization, Other)
  Sender: FDA-Public Use
  Company Number: US-ABBOTT-13P-163-1037907-00

PATIENT
  Age: 39 None
  Sex: Female
  Weight: 108.96 kg

DRUGS (13)
  1. HUMIRA [Suspect]
     Indication: PSORIASIS
     Dates: start: 2009
  2. LYRICA [Concomitant]
     Indication: FIBROMYALGIA
  3. LISINOPRIL [Concomitant]
     Indication: HYPERTENSION
  4. VENTOLIN [Concomitant]
     Indication: ASTHMA
  5. OXYGEN [Concomitant]
     Indication: PRODUCT USED FOR UNKNOWN INDICATION
     Dosage: AT NIGHT, VIA NASAL CANULA
  6. AMBIEN [Concomitant]
     Indication: INSOMNIA
  7. LEXAPRO [Concomitant]
     Indication: DEPRESSION
  8. KLONOPIN [Concomitant]
     Indication: DEPRESSION
  9. ADVAIR [Concomitant]
     Indication: ASTHMA
  10. PROTONIX [Concomitant]
     Indication: GASTROOESOPHAGEAL REFLUX DISEASE
  11. BUTRANS [Concomitant]
     Indication: PAIN MANAGEMENT
     Route: 062
  12. ESTRADIOL [Concomitant]
     Indication: PRODUCT USED FOR UNKNOWN INDICATION
  13. MEDROXYPROGESTERONE [Concomitant]
     Indication: PRODUCT USED FOR UNKNOWN INDICATION

REACTIONS (2)
  - Back pain [Not Recovered/Not Resolved]
  - Back disorder [Unknown]
